FAERS Safety Report 5064792-3 (Version None)
Quarter: 2006Q3

REPORT INFORMATION
  Report Type: 
  Country: None (occurrence: None)
  Receive Date: 20060728
  Receipt Date: 20051026
  Transmission Date: 20061208
  Serious: Yes (Other)
  Sender: FDA-Public Use
  Company Number: PHBS2005JP16003

PATIENT
  Age: 72 Year
  Sex: Female
  Weight: 32 kg

DRUGS (10)
  1. FENTANEST [Concomitant]
     Indication: ANAESTHESIA
     Dosage: 50 UG, UNK
     Route: 042
     Dates: start: 20050422, end: 20050422
  2. DIOVAN [Suspect]
     Dosage: 40 MG, QD
     Route: 048
  3. PROPOFOL [Suspect]
     Indication: ANAESTHESIA
     Dosage: 50 MG/DAY
  4. FENTANYL [Suspect]
     Indication: ANAESTHESIA
     Dosage: 50 UG, UNK
     Route: 042
     Dates: start: 20050422, end: 20050422
  5. NITROUS OXIDE W/ OXYGEN [Suspect]
     Indication: ANAESTHESIA
     Dosage: 50 %/DAY
     Dates: start: 20050422, end: 20050422
  6. SEVOFLURANE [Suspect]
     Indication: ANAESTHESIA
     Dosage: 1%/DAY
     Dates: start: 20050422, end: 20050422
  7. ATRIAL NATRIURETIC PEPTIDE [Concomitant]
  8. HANP [Suspect]
     Indication: RENAL FAILURE
     Dosage: 0.02 UG/KG/DAY
     Route: 042
     Dates: start: 20050422, end: 20050422
  9. DIART [Concomitant]
     Indication: OEDEMA
     Dosage: 60 MG, UNK
     Route: 048
  10. MUSCULAX [Concomitant]
     Indication: HYPOTONIA
     Dosage: 4 MG, UNK
     Route: 042
     Dates: start: 20050422, end: 20050422

REACTIONS (3)
  - DRUG INTERACTION [None]
  - HEART RATE DECREASED [None]
  - HYPOTENSION [None]
